FAERS Safety Report 9519467 (Version 1)
Quarter: 2013Q3

REPORT INFORMATION
  Report Type: Spontaneous
  Country: US (occurrence: US)
  Receive Date: 20130912
  Receipt Date: 20130912
  Transmission Date: 20140515
  Serious: No
  Sender: FDA-Public Use
  Company Number: US-009507513-1309USA004104

PATIENT
  Age: 26 Year
  Sex: Female
  Weight: 102.4 kg

DRUGS (2)
  1. NEXPLANON [Suspect]
     Indication: CONTRACEPTION
     Dosage: 1 ROD UP TO 3 YEARS
     Route: 059
     Dates: start: 20130905
  2. TYLENOL [Concomitant]
     Indication: PAIN IN EXTREMITY
     Dosage: UNK, PRN

REACTIONS (3)
  - Implant site pain [Unknown]
  - Device breakage [Unknown]
  - Device expulsion [Unknown]
